FAERS Safety Report 9276283 (Version 1)
Quarter: 2012Q4

REPORT INFORMATION
  Report Type: Spontaneous
  Country: CH (occurrence: None)
  Receive Date: 20121109
  Receipt Date: 20121109
  Transmission Date: 20130627
  Serious: Yes (Death)
  Sender: FDA-Public Use
  Company Number: 2012S1000211

PATIENT
  Age: 54 Year
  Sex: Female
  Weight: 75 kg

DRUGS (13)
  1. CUBICIN [Suspect]
     Indication: NEUTROPENIC ENTEROCOLITIS
     Route: 042
     Dates: start: 20111118
  2. VANCOCIN [Suspect]
     Indication: NEUTROPENIC ENTEROCOLITIS
     Dates: start: 20111104
  3. MERONEM [Concomitant]
  4. BACTRIM /00086101/ [Concomitant]
  5. VFEND [Concomitant]
  6. DALACINE /00166003/ [Concomitant]
  7. AMBISOME /00057501/ [Concomitant]
  8. ACICLOVIR [Concomitant]
  9. NEXIUM [Concomitant]
  10. PERFALGAN [Concomitant]
  11. NAVOBAN [Concomitant]
  12. PASPERTIN /01169401/ [Concomitant]
  13. PARACETAMOL [Concomitant]

REACTIONS (6)
  - Acute hepatic failure [None]
  - Cardiac failure acute [None]
  - Septic shock [None]
  - Neutropenia [None]
  - Renal failure acute [None]
  - Haemoglobin decreased [None]
